FAERS Safety Report 25331311 (Version 1)
Quarter: 2025Q2

REPORT INFORMATION
  Report Type: Spontaneous
  Country: FR (occurrence: FR)
  Receive Date: 20250519
  Receipt Date: 20250519
  Transmission Date: 20250716
  Serious: Yes (Hospitalization)
  Sender: MERCK SHARP & DOHME LLC
  Company Number: None

PATIENT
  Age: 20 Year
  Sex: Female
  Weight: 60 kg

DRUGS (21)
  1. ZERBAXA [Suspect]
     Active Substance: CEFTOLOZANE SULFATE\TAZOBACTAM SODIUM
     Indication: Burkholderia cepacia complex infection
     Route: 042
     Dates: start: 20250325, end: 20250413
  2. EXACYL 1 g/10 ml, oral solution [Concomitant]
  3. SERETIDE DISKUS 250/50 micrograms/dose, inhalation powder in single... [Concomitant]
  4. MOVICOL [Concomitant]
     Active Substance: POLYETHYLENE GLYCOL 3350\POTASSIUM CHLORIDE\SODIUM BICARBONATE\SODIUM CHLORIDE
  5. ELEXACAFTOR\IVACAFTOR\TEZACAFTOR [Concomitant]
     Active Substance: ELEXACAFTOR\IVACAFTOR\TEZACAFTOR
  6. LANTUS [Concomitant]
     Active Substance: INSULIN GLARGINE
  7. BACTRIM FORTE I M, solution for injection [Concomitant]
  8. ESOMEPRAZOLE ACTAVIS 20 mg, gastro-resistant capsule [Concomitant]
  9. VITAMIN K1 20 mg/ml, oral emulsion in drops [Concomitant]
  10. NOVORAPID [Concomitant]
     Active Substance: INSULIN ASPART
  11. CREON 25,000 U, gastro-resistant granules in capsules [Concomitant]
  12. ALBUTEROL [Concomitant]
     Active Substance: ALBUTEROL
  13. URSOLVAN 200 mg, capsule [Concomitant]
  14. BRICANYL 5 mg/2 ml, solution for inhalation by nebulizer in single-... [Concomitant]
  15. KALYDECO [Concomitant]
     Active Substance: IVACAFTOR
  16. TERBUTALINE [Concomitant]
     Active Substance: TERBUTALINE
  17. BACTRIM [Suspect]
     Active Substance: SULFAMETHOXAZOLE\TRIMETHOPRIM
     Route: 048
     Dates: start: 20250325, end: 20250413
  18. CREON 12000 U, gastro-resistant granules in capsules [Concomitant]
  19. DOXYCYCLINE [Concomitant]
     Active Substance: DOXYCYCLINE
  20. MELATONIN ARROW LP 2 mg, prolonged-release tablet [Concomitant]
  21. ZITHROMAX 250 mg, film-coated tablet [Concomitant]

REACTIONS (1)
  - Purpura [Recovered/Resolved]

NARRATIVE: CASE EVENT DATE: 20250412
